FAERS Safety Report 8372614 (Version 2)
Quarter: 2013Q1

REPORT INFORMATION
  Report Type: Report from Study
  Country: US (occurrence: US)
  Receive Date: 20120129
  Receipt Date: 20130129
  Transmission Date: 20140127
  Serious: No
  Sender: FDA-Public Use
  Company Number: US-ABBOTT-11P-163-0871916-00

PATIENT
  Age: 70 None
  Sex: Female

DRUGS (9)
  1. HUMIRA 40 MG/0.8 ML PEN [Suspect]
     Indication: PSORIATIC ARTHROPATHY
     Route: 058
     Dates: start: 201109, end: 201111
  2. LISINOPRIL [Concomitant]
     Indication: HYPERTENSION
     Dosage: DAILY
  3. SIMVASTATIN [Concomitant]
     Indication: BLOOD CHOLESTEROL INCREASED
     Dosage: DAILY
  4. PREVACID [Concomitant]
     Indication: GASTROOESOPHAGEAL REFLUX DISEASE
     Dosage: DAILY
  5. LEVBID [Concomitant]
     Indication: ABDOMINAL PAIN
     Dosage: UP TO 4 TIMES DAILY
  6. PAROXETINE [Concomitant]
     Indication: GASTROINTESTINAL DISORDER
     Dosage: DAILY
  7. ZOLPIDEM [Concomitant]
     Indication: INSOMNIA
     Dosage: DAILY
  8. BENTYL [Concomitant]
     Indication: ABDOMINAL PAIN
  9. EYE DROPS [Concomitant]
     Indication: GLAUCOMA
     Dosage: DAILY

REACTIONS (6)
  - Abdominal pain [Not Recovered/Not Resolved]
  - Abdominal distension [Not Recovered/Not Resolved]
  - Flatulence [Not Recovered/Not Resolved]
  - Fatigue [Unknown]
  - Fatigue [Unknown]
  - Pyrexia [Unknown]
